FAERS Safety Report 19613755 (Version 1)
Quarter: 2021Q3

REPORT INFORMATION
  Report Type: Spontaneous
  Country: US (occurrence: US)
  Receive Date: 20210724
  Receipt Date: 20210724
  Transmission Date: 20211014
  Serious: Yes (Hospitalization)
  Sender: FDA-Public Use
  Company Number: None

PATIENT
  Age: 56 Year
  Sex: Male
  Weight: 76 kg

DRUGS (8)
  1. SPRYCEL [Suspect]
     Active Substance: DASATINIB
     Dates: end: 20210717
  2. METHOTREXATE. [Suspect]
     Active Substance: METHOTREXATE
     Route: 037
     Dates: end: 20210708
  3. DOXORUBICIN HYDROCHLORIDE. [Suspect]
     Active Substance: DOXORUBICIN HYDROCHLORIDE
     Dates: end: 20210711
  4. CYTARABINE. [Suspect]
     Active Substance: CYTARABINE
     Route: 037
     Dates: end: 20210708
  5. DEXAMETHASONE. [Suspect]
     Active Substance: DEXAMETHASONE
     Dates: end: 20210711
  6. CYCLOPHOSPHAMIDE. [Suspect]
     Active Substance: CYCLOPHOSPHAMIDE
     Dates: end: 20210711
  7. VINCRISTINE SULFATE. [Suspect]
     Active Substance: VINCRISTINE SULFATE
     Dates: end: 20210711
  8. MESNA. [Suspect]
     Active Substance: MESNA
     Dates: end: 20210711

REACTIONS (6)
  - Neutrophil count decreased [None]
  - Platelet count decreased [None]
  - Pyrexia [None]
  - Oropharyngeal pain [None]
  - Haemoglobin decreased [None]
  - White blood cell count decreased [None]

NARRATIVE: CASE EVENT DATE: 20210717
